FAERS Safety Report 4527391-5 (Version None)
Quarter: 2004Q4

REPORT INFORMATION
  Report Type: 
  Country: None (occurrence: None)
  Receive Date: 20041215
  Receipt Date: 20041202
  Transmission Date: 20050328
  Serious: Yes (Hospitalization)
  Sender: FDA-Public Use
  Company Number: FR-JNJFOC-20041201143

PATIENT
  Age: 90 Year
  Sex: Female
  Weight: 68 kg

DRUGS (3)
  1. DURAGESIC [Suspect]
     Route: 062
  2. STILNOX [Concomitant]
     Route: 065
  3. BURINEX [Concomitant]
     Route: 065

REACTIONS (6)
  - CONFUSIONAL STATE [None]
  - DISORIENTATION [None]
  - DYSPHORIA [None]
  - FALL [None]
  - HALLUCINATION, AUDITORY [None]
  - PERSONALITY DISORDER [None]
